FAERS Safety Report 5359694-9 (Version None)
Quarter: 2007Q2

REPORT INFORMATION
  Report Type: 
  Country: None (occurrence: None)
  Receive Date: 20070530
  Receipt Date: 20070320
  Transmission Date: 20071010
  Serious: No
  Sender: FDA-Public Use
  Company Number: 2007PV032021

PATIENT
  Age: 66 Year
  Sex: Female
  Weight: 87.5442 kg

DRUGS (3)
  1. BYETTA [Suspect]
     Indication: WEIGHT DECREASED
     Dosage: 5 MCG; BID; SC
     Route: 058
     Dates: start: 20070315, end: 20070319
  2. NOVOLOG [Concomitant]
  3. LANTUS [Concomitant]

REACTIONS (1)
  - BLOOD GLUCOSE INCREASED [None]
